FAERS Safety Report 24878340 (Version 1)
Quarter: 2025Q1

REPORT INFORMATION
  Report Type: Other
  Country: US (occurrence: US)
  Receive Date: 20250123
  Receipt Date: 20250123
  Transmission Date: 20250408
  Serious: Yes (Hospitalization, Other)
  Sender: RENATA LIMITED
  Company Number: US-Renata Limited-2169631

PATIENT
  Age: 66 Year
  Sex: Male

DRUGS (9)
  1. METOPROLOL TARTRATE [Suspect]
     Active Substance: METOPROLOL TARTRATE
     Indication: Product used for unknown indication
  2. ENTRESTO [Suspect]
     Active Substance: SACUBITRIL\VALSARTAN
  3. SALINE [Concomitant]
     Active Substance: SODIUM CHLORIDE
  4. AMIODARONE HYDROCHLORIDE [Concomitant]
     Active Substance: AMIODARONE HYDROCHLORIDE
  5. ELIQUIS [Concomitant]
     Active Substance: APIXABAN
  6. CLOPIDOGREL [Concomitant]
     Active Substance: CLOPIDOGREL BISULFATE
  7. ASPIRIN [Concomitant]
     Active Substance: ASPIRIN
  8. COLCHICINE [Suspect]
     Active Substance: COLCHICINE
  9. FARXIGA [Suspect]
     Active Substance: DAPAGLIFLOZIN PROPANEDIOL

REACTIONS (1)
  - Acute kidney injury [Recovering/Resolving]
